FAERS Safety Report 8819884 (Version 2)
Quarter: 2012Q4

REPORT INFORMATION
  Report Type: 
  Country: GB (occurrence: GB)
  Receive Date: 20121002
  Receipt Date: 20121227
  Transmission Date: 20130627
  Serious: Yes (Other)
  Sender: FDA-Public Use
  Company Number: GB-MERCK-2012SP034429

PATIENT
  Age: 31 Year
  Sex: Female

DRUGS (2)
  1. MIRTAZAPINE [Suspect]
     Indication: DEPRESSION
     Dosage: 30 mg, Unknown
     Route: 048
     Dates: start: 2006
  2. HALOPERIDOL [Suspect]
     Indication: ANXIETY
     Dosage: 0.5 mg, Unknown
     Route: 048
     Dates: start: 201201

REACTIONS (2)
  - Gestational diabetes [Recovered/Resolved]
  - Exposure during pregnancy [Unknown]
